FAERS Safety Report 11181270 (Version 8)
Quarter: 2015Q2

REPORT INFORMATION
  Report Type: Spontaneous
  Country: VE (occurrence: VE)
  Receive Date: 20150611
  Receipt Date: 20150622
  Transmission Date: 20150821
  Serious: Yes (Death)
  Sender: FDA-Public Use
  Company Number: VE-UNITED THERAPEUTICS-UNT-2015-006790

PATIENT
  Age: 18 Year
  Sex: Female

DRUGS (7)
  1. REMODULIN [Suspect]
     Active Substance: TREPROSTINIL
     Dosage: 0.004 ?G/KG, CONTINUING
     Route: 058
     Dates: start: 20111207
  2. REMODULIN [Suspect]
     Active Substance: TREPROSTINIL
     Dosage: .012 ?G/KG, CONTINUING
     Dates: start: 20130203
  3. NEBILET [Concomitant]
     Active Substance: NEBIVOLOL
     Indication: PRODUCT USED FOR UNKNOWN INDICATION
     Dosage: 5 MG, UNK
     Dates: start: 2010
  4. REMODULIN [Suspect]
     Active Substance: TREPROSTINIL
     Indication: PULMONARY ARTERIAL HYPERTENSION
     Dosage: 0.002 ?G/KG, CONTINUING
     Route: 058
     Dates: start: 20111006
  5. LASIX [Concomitant]
     Active Substance: FUROSEMIDE
     Indication: PRODUCT USED FOR UNKNOWN INDICATION
     Dosage: 50 MG, UNK
     Dates: start: 2009
  6. REMODULIN [Suspect]
     Active Substance: TREPROSTINIL
     Dosage: .006 ?G/KG, CONTINUING
     Dates: start: 20120127
  7. REMODULIN [Suspect]
     Active Substance: TREPROSTINIL
     Dosage: .010 ?G/KG, CONTINUING
     Dates: start: 20120808

REACTIONS (1)
  - Pulmonary hypertension [Fatal]
